FAERS Safety Report 21350020 (Version 3)
Quarter: 2022Q4

REPORT INFORMATION
  Report Type: Report from Study
  Country: CH (occurrence: CH)
  Receive Date: 20220919
  Receipt Date: 20221221
  Transmission Date: 20230113
  Serious: Yes (Hospitalization)
  Sender: FDA-Public Use
  Company Number: CH-NOVARTISPH-NVSC2022CH209382

PATIENT
  Sex: Male
  Weight: 115 kg

DRUGS (2)
  1. MAYZENT [Suspect]
     Active Substance: SIPONIMOD
     Indication: Secondary progressive multiple sclerosis
     Dosage: UNK (INITIATION)
     Route: 048
     Dates: start: 20220125, end: 20220129
  2. MAYZENT [Suspect]
     Active Substance: SIPONIMOD
     Dosage: 1 MG (MAINTENANCE DOSE)
     Route: 048
     Dates: start: 20220125

REACTIONS (1)
  - Cystitis haemorrhagic [Recovered/Resolved]

NARRATIVE: CASE EVENT DATE: 20220821
